FAERS Safety Report 13395589 (Version 1)
Quarter: 2017Q2

REPORT INFORMATION
  Report Type: Spontaneous
  Country: US (occurrence: US)
  Receive Date: 20170401
  Receipt Date: 20170401
  Transmission Date: 20170830
  Serious: Yes (Other)
  Sender: FDA-Public Use
  Company Number: None

PATIENT
  Age: 19 Year
  Sex: Female
  Weight: 71.55 kg

DRUGS (1)
  1. JUNEL FE 1/20 [Suspect]
     Active Substance: ETHINYL ESTRADIOL\NORETHINDRONE ACETATE
     Indication: OVARIAN CYST
     Dosage: ?          QUANTITY:28 TABLET(S);?
     Route: 048

REACTIONS (18)
  - Anxiety [None]
  - Heart rate increased [None]
  - Dyspepsia [None]
  - Disturbance in attention [None]
  - Vomiting [None]
  - Panic attack [None]
  - Obsessive thoughts [None]
  - Mood swings [None]
  - Insomnia [None]
  - Depression [None]
  - Dizziness [None]
  - Paranoia [None]
  - Weight decreased [None]
  - Hot flush [None]
  - Cold sweat [None]
  - Migraine [None]
  - Aura [None]
  - Hypertension [None]

NARRATIVE: CASE EVENT DATE: 20160904
